FAERS Safety Report 13151701 (Version 1)
Quarter: 2017Q1

REPORT INFORMATION
  Report Type: Spontaneous
  Country: US (occurrence: US)
  Receive Date: 20170125
  Receipt Date: 20170125
  Transmission Date: 20170428
  Serious: Yes (Other)
  Sender: FDA-Public Use
  Company Number: US-UNITED THERAPEUTICS-UNT-2017-000042

PATIENT
  Age: 66 Year
  Sex: Male
  Weight: 135.6 kg

DRUGS (2)
  1. TYVASO [Suspect]
     Active Substance: TREPROSTINIL
     Indication: PULMONARY ARTERIAL HYPERTENSION
     Dosage: 18-54 ?G, QID
     Dates: start: 20161007
  2. TYVASO [Suspect]
     Active Substance: TREPROSTINIL
     Dosage: 3-54 ?G, QID

REACTIONS (3)
  - Dyspnoea [Unknown]
  - Venoocclusive disease [Unknown]
  - Off label use [Unknown]

NARRATIVE: CASE EVENT DATE: 201701
